FAERS Safety Report 23737310 (Version 1)
Quarter: 2024Q2

REPORT INFORMATION
  Report Type: Spontaneous
  Country: US (occurrence: None)
  Receive Date: 20240412
  Receipt Date: 20240412
  Transmission Date: 20240716
  Serious: No
  Sender: FDA-Public Use
  Company Number: None

PATIENT
  Age: 68 Year
  Sex: Male

DRUGS (1)
  1. BOTOX [Suspect]
     Active Substance: ONABOTULINUMTOXINA
     Indication: Torticollis
     Dosage: OTHER FREQUENCY : EVERY 12 WEEKS;?
     Route: 058

REACTIONS (5)
  - Dysphagia [None]
  - Condition aggravated [None]
  - Therapy interrupted [None]
  - Loss of consciousness [None]
  - Foaming at mouth [None]

NARRATIVE: CASE EVENT DATE: 20231202
